FAERS Safety Report 8239056-7 (Version None)
Quarter: 2012Q1

REPORT INFORMATION
  Report Type: 
  Country: None (occurrence: None)
  Receive Date: 20120327
  Receipt Date: 20120319
  Transmission Date: 20120608
  Serious: Yes (Other)
  Sender: FDA-Public Use
  Company Number: JP-MERCK-1201USA03456

PATIENT
  Age: 77 Year
  Sex: Male

DRUGS (3)
  1. JANUVIA [Suspect]
     Indication: TYPE 2 DIABETES MELLITUS
     Route: 048
     Dates: start: 20101009, end: 20111201
  2. BISOPROLOL FUMARATE [Suspect]
     Indication: ATRIAL TACHYCARDIA
     Route: 048
     Dates: start: 20110929, end: 20111201
  3. BISOPROLOL FUMARATE [Suspect]
     Route: 048
     Dates: start: 20110729, end: 20110928

REACTIONS (2)
  - INTERSTITIAL LUNG DISEASE [None]
  - ATRIAL TACHYCARDIA [None]
